FAERS Safety Report 5862393-8 (Version None)
Quarter: 2008Q3

REPORT INFORMATION
  Report Type: 
  Country: None (occurrence: None)
  Receive Date: 20080828
  Receipt Date: 20080826
  Transmission Date: 20090109
  Serious: Yes (Life-Threatening)
  Sender: FDA-Public Use
  Company Number: US-BRISTOL-MYERS SQUIBB COMPANY-14201263

PATIENT
  Age: 47 Year
  Sex: Female

DRUGS (4)
  1. ABILIFY [Suspect]
     Indication: BIPOLAR II DISORDER
     Dosage: DAILY FOR 2 WEEKS.
     Route: 048
     Dates: start: 20080108, end: 20080326
  2. DEPAKOTE ER [Suspect]
     Dates: start: 20071101, end: 20080326
  3. AMBIEN [Concomitant]
     Dosage: 5G QHS
     Dates: start: 20071101, end: 20080407
  4. TEGRETOL [Concomitant]
     Dates: start: 20080326, end: 20080407

REACTIONS (1)
  - STEVENS-JOHNSON SYNDROME [None]
